FAERS Safety Report 4524887-7 (Version None)
Quarter: 2004Q4

REPORT INFORMATION
  Report Type: 
  Country: None (occurrence: None)
  Receive Date: 20041117
  Receipt Date: 20040302
  Transmission Date: 20050328
  Serious: Yes (Other)
  Sender: FDA-Public Use
  Company Number: 2004S1000666

PATIENT
  Age: 46 Year
  Sex: Male

DRUGS (1)
  1. CLOZAPINE [Suspect]
     Indication: PSYCHOTIC DISORDER
     Dosage: 25MG, BID, ORAL
     Route: 048
     Dates: start: 20040204, end: 20040225

REACTIONS (2)
  - LEUKOPENIA [None]
  - NEUTROPHIL COUNT DECREASED [None]
